FAERS Safety Report 6232101-X (Version None)
Quarter: 2009Q2

REPORT INFORMATION
  Report Type: 
  Country: None (occurrence: None)
  Receive Date: 20090616
  Receipt Date: 20090608
  Transmission Date: 20091009
  Serious: Yes (Hospitalization)
  Sender: FDA-Public Use
  Company Number: US-SANOFI-SYNTHELABO-A03200902096

PATIENT
  Sex: Male
  Weight: 77.6 kg

DRUGS (14)
  1. AVASTIN [Concomitant]
     Indication: DRUG USE FOR UNKNOWN INDICATION
     Dosage: UNK
     Route: 065
  2. LEUCOVORIN CALCIUM [Concomitant]
     Indication: DRUG USE FOR UNKNOWN INDICATION
     Dosage: UNK
     Route: 065
  3. ELOXATIN [Suspect]
     Indication: COLON CANCER
     Dosage: 158 MG EVERY 2 WEEKS
     Route: 042
     Dates: start: 20090428, end: 20090428
  4. METFORMIN HCL [Concomitant]
     Indication: DIABETES MELLITUS
     Route: 065
  5. AMIODARONE HCL [Concomitant]
     Indication: CARDIAC DISORDER
     Route: 065
  6. AMIODARONE HCL [Concomitant]
     Indication: BLOOD CHOLESTEROL
     Route: 065
  7. VYTORIN [Concomitant]
     Indication: CARDIAC DISORDER
     Dosage: 10 / 40 EVERY EVENING
     Route: 065
  8. VYTORIN [Concomitant]
     Indication: BLOOD CHOLESTEROL
     Dosage: 10 / 40 EVERY EVENING
     Route: 065
  9. COREG CR [Concomitant]
     Indication: CARDIAC DISORDER
     Route: 065
  10. COREG CR [Concomitant]
     Indication: BLOOD CHOLESTEROL
     Route: 065
  11. LISINOPRIL [Concomitant]
     Indication: CARDIAC DISORDER
     Route: 065
  12. LISINOPRIL [Concomitant]
     Indication: BLOOD CHOLESTEROL
     Route: 065
  13. BUMETANIDE [Concomitant]
     Indication: CARDIAC DISORDER
     Route: 065
  14. BUMETANIDE [Concomitant]
     Indication: BLOOD CHOLESTEROL
     Route: 065

REACTIONS (7)
  - APNOEA [None]
  - BLOOD PRESSURE DECREASED [None]
  - DYSPNOEA [None]
  - FEELING HOT [None]
  - HEART RATE DECREASED [None]
  - OXYGEN SATURATION DECREASED [None]
  - PULSE ABSENT [None]
